FAERS Safety Report 4592627-1 (Version None)
Quarter: 2005Q1

REPORT INFORMATION
  Report Type: 
  Country: None (occurrence: None)
  Receive Date: 20050228
  Receipt Date: 20050215
  Transmission Date: 20050727
  Serious: Yes (Hospitalization)
  Sender: FDA-Public Use
  Company Number: AU-JNJFOC-20050204813

PATIENT
  Sex: Female

DRUGS (12)
  1. TRAMADOL HCL [Suspect]
     Indication: OSTEOARTHRITIS
     Route: 065
  2. CITALOPRAM HYDROBROMIDE [Suspect]
     Indication: DEPRESSION
     Route: 065
  3. CARBAMAZEPINE [Suspect]
     Indication: DRUG USE FOR UNKNOWN INDICATION
     Route: 065
  4. CELECOXIB [Concomitant]
     Indication: OSTEOARTHRITIS
     Route: 065
  5. OMEPRAZOLE [Concomitant]
     Route: 065
  6. CLOPIDOGREL [Concomitant]
     Route: 065
  7. ATORVASTATIN CALCIUM [Concomitant]
     Route: 065
  8. CALCIUM CITRATE [Concomitant]
     Route: 065
  9. CALCIUM CARBONATE [Concomitant]
     Route: 065
  10. FELODIPINE [Concomitant]
     Route: 065
  11. TEMAZEPAM [Concomitant]
     Indication: SLEEP DISORDER
     Route: 065
  12. ZOLPIDEM TARTRATE [Concomitant]
     Indication: SLEEP DISORDER
     Route: 065

REACTIONS (1)
  - HYPONATRAEMIA [None]
